FAERS Safety Report 12216244 (Version 1)
Quarter: 2016Q1

REPORT INFORMATION
  Report Type: Spontaneous
  Country: GB (occurrence: GB)
  Receive Date: 20160329
  Receipt Date: 20160329
  Transmission Date: 20160526
  Serious: Yes (Other)
  Sender: FDA-Public Use
  Company Number: GB-AMGEN-GBRSP2016019624

PATIENT
  Age: 72 Year
  Sex: Female

DRUGS (7)
  1. PALONOSETRON [Concomitant]
     Active Substance: PALONOSETRON
     Dosage: UNK
  2. FLUOROURACIL. [Concomitant]
     Active Substance: FLUOROURACIL
     Dosage: UNK
  3. CYCLOPHOSPHAMIDE. [Concomitant]
     Active Substance: CYCLOPHOSPHAMIDE
     Dosage: UNK
  4. NEULASTA [Suspect]
     Active Substance: PEGFILGRASTIM
     Indication: PRODUCT USED FOR UNKNOWN INDICATION
     Dosage: 3WEEKLY
     Route: 065
  5. APREPITANT. [Concomitant]
     Active Substance: APREPITANT
     Dosage: UNK
  6. DEXAMETHASONE. [Concomitant]
     Active Substance: DEXAMETHASONE
     Dosage: UNK
  7. EPIRUBICIN [Concomitant]
     Active Substance: EPIRUBICIN
     Dosage: UNK

REACTIONS (26)
  - Syncope [Unknown]
  - Tenderness [Not Recovered/Not Resolved]
  - Infusion site pain [Not Recovered/Not Resolved]
  - Mood altered [Not Recovered/Not Resolved]
  - Decreased appetite [Unknown]
  - Nausea [Unknown]
  - Flatulence [Unknown]
  - Muscular weakness [Not Recovered/Not Resolved]
  - Vein disorder [Not Recovered/Not Resolved]
  - Abnormal dreams [Unknown]
  - Hypophagia [Not Recovered/Not Resolved]
  - Oropharyngeal pain [Unknown]
  - Dizziness [Unknown]
  - Tremor [Unknown]
  - Infusion site dryness [Not Recovered/Not Resolved]
  - Asthenia [Unknown]
  - Cellulitis [Unknown]
  - Nasopharyngitis [Not Recovered/Not Resolved]
  - Fatigue [Not Recovered/Not Resolved]
  - Constipation [Recovering/Resolving]
  - Insomnia [Unknown]
  - Malaise [Unknown]
  - Anxiety [Unknown]
  - Paraesthesia [Unknown]
  - Infusion site oedema [Not Recovered/Not Resolved]
  - Diarrhoea [Not Recovered/Not Resolved]

NARRATIVE: CASE EVENT DATE: 20160217
